APPROVED DRUG PRODUCT: OMEPRAZOLE MAGNESIUM
Active Ingredient: OMEPRAZOLE MAGNESIUM
Strength: EQ 20MG BASE
Dosage Form/Route: CAPSULE, DELAYED RELEASE;ORAL
Application: A216096 | Product #001
Applicant: DEXCEL PHARMA TECHNOLOGIES LTD
Approved: May 24, 2022 | RLD: No | RS: No | Type: OTC